FAERS Safety Report 5756158-5 (Version None)
Quarter: 2008Q2

REPORT INFORMATION
  Report Type: 
  Country: None (occurrence: None)
  Receive Date: 20080602
  Receipt Date: 20080521
  Transmission Date: 20081010
  Serious: Yes (Other)
  Sender: FDA-Public Use
  Company Number: NL-MERCK-0804NLD00032

PATIENT
  Age: 58 Year
  Sex: Female

DRUGS (5)
  1. ZOCOR [Suspect]
     Indication: DIABETES MELLITUS
     Route: 048
     Dates: start: 20080205, end: 20080409
  2. ROSIGLITAZONE MALEATE [Concomitant]
     Route: 048
  3. ESTRIOL SUCCINATE [Concomitant]
     Route: 048
  4. SITAGLIPTIN PHOSPHATE [Concomitant]
     Route: 048
  5. GLICLAZIDE [Concomitant]
     Route: 065

REACTIONS (1)
  - PHOTOPHOBIA [None]
